FAERS Safety Report 9999053 (Version 1)
Quarter: 2014Q1

REPORT INFORMATION
  Report Type: Spontaneous
  Country: US (occurrence: None)
  Receive Date: 20140310
  Receipt Date: 20140310
  Transmission Date: 20141002
  Serious: Yes (Other)
  Sender: FDA-Public Use
  Company Number: 2014P1001802

PATIENT
  Age: 58 Year
  Sex: Female

DRUGS (3)
  1. LEVOFLOXACIN [Suspect]
     Indication: PYREXIA
  2. LEVOFLOXACIN [Suspect]
     Indication: COUGH
  3. LEVOFLOXACIN [Suspect]
     Indication: MYALGIA

REACTIONS (3)
  - Eosinophilic pneumonia [None]
  - Rash erythematous [None]
  - Rash pruritic [None]
